FAERS Safety Report 9909425 (Version 3)
Quarter: 2015Q3

REPORT INFORMATION
  Report Type: Spontaneous
  Country: US (occurrence: US)
  Receive Date: 20140219
  Receipt Date: 20150811
  Transmission Date: 20151125
  Serious: No
  Sender: FDA-Public Use
  Company Number: US-GILEAD-2012-0053158

PATIENT
  Age: 76 Year
  Sex: Female

DRUGS (2)
  1. LETAIRIS [Suspect]
     Active Substance: AMBRISENTAN
     Indication: PULMONARY HYPERTENSION
     Dosage: 5 MG, UNK
     Route: 048
     Dates: start: 20120820
  2. OXYGEN. [Concomitant]
     Active Substance: OXYGEN

REACTIONS (14)
  - Nasal dryness [Unknown]
  - Nasal congestion [Unknown]
  - Nasal discharge discolouration [Unknown]
  - Oxygen consumption increased [Unknown]
  - Unevaluable event [Unknown]
  - Rhinorrhoea [Unknown]
  - Epistaxis [Unknown]
  - Pulmonary function test decreased [Unknown]
  - Sinus disorder [Unknown]
  - Cough [Unknown]
  - Exercise tolerance decreased [Unknown]
  - Insomnia [Unknown]
  - Dyspnoea [Unknown]
  - Dizziness [Unknown]
